FAERS Safety Report 7201688-2 (Version None)
Quarter: 2010Q4

REPORT INFORMATION
  Report Type: 
  Country: None (occurrence: None)
  Receive Date: 20101229
  Receipt Date: 20081027
  Transmission Date: 20110411
  Serious: Yes (Hospitalization)
  Sender: FDA-Public Use
  Company Number: DE-ROCHE-591555

PATIENT
  Age: 62 Year
  Sex: Male

DRUGS (27)
  1. MYCOPHENOLATE MOFETIL [Suspect]
     Route: 065
     Dates: start: 20080414, end: 20080515
  2. MYCOPHENOLATE MOFETIL [Suspect]
     Route: 065
     Dates: start: 20080523, end: 20080523
  3. MYCOPHENOLATE MOFETIL [Suspect]
     Route: 065
     Dates: start: 20080524
  4. VALGANCICLOVIR HCL [Suspect]
     Route: 048
     Dates: start: 20080423
  5. TACROLIMUS [Suspect]
     Route: 065
     Dates: start: 20080510, end: 20080515
  6. TACROLIMUS [Suspect]
     Route: 065
     Dates: start: 20080515, end: 20080515
  7. TACROLIMUS [Suspect]
     Route: 065
     Dates: start: 20080516, end: 20080516
  8. TACROLIMUS [Suspect]
     Route: 065
     Dates: start: 20080517, end: 20080518
  9. TACROLIMUS [Suspect]
     Route: 065
     Dates: start: 20080519, end: 20080519
  10. TACROLIMUS [Suspect]
     Route: 065
     Dates: start: 20080520, end: 20080520
  11. TACROLIMUS [Suspect]
     Route: 065
     Dates: start: 20080523
  12. TACROLIMUS [Suspect]
     Route: 065
     Dates: start: 20080619
  13. PREDNISONE [Concomitant]
     Dates: start: 20080506, end: 20080515
  14. PREDNISONE [Concomitant]
     Dates: start: 20080531
  15. COTRIM [Concomitant]
     Dosage: TDD REPORTED AS 1/2 TABLET.
     Dates: start: 20080413
  16. PANTOPRAZOLE [Concomitant]
     Dates: start: 20080413
  17. TORASEMID [Concomitant]
     Dates: start: 20080514, end: 20080603
  18. NEURONTIN [Concomitant]
     Dates: start: 20080423, end: 20080530
  19. ALNA [Concomitant]
     Dates: start: 20080425
  20. NOVONORM [Concomitant]
     Dates: start: 20080503, end: 20080527
  21. AVANDIA [Concomitant]
     Dates: start: 20080507, end: 20080527
  22. METOPROLOL TARTRATE [Concomitant]
     Dates: start: 20080507, end: 20080527
  23. CIPROFLOXACIN [Concomitant]
     Dates: start: 20080510, end: 20080530
  24. ACTRAPHANE [Concomitant]
     Dosage: DOSE AS REQUIRED.
     Dates: start: 20080523
  25. NEORECORMON [Concomitant]
     Dosage: TDD: 4000 IE
     Dates: start: 20080523
  26. AMPHOTERICIN B [Concomitant]
     Dates: start: 20080619
  27. BONIDON [Concomitant]
     Dates: start: 20080530

REACTIONS (3)
  - BENIGN PROSTATIC HYPERPLASIA [None]
  - PYELONEPHRITIS [None]
  - TRANSPLANT REJECTION [None]
